FAERS Safety Report 23702836 (Version 1)
Quarter: 2024Q2

REPORT INFORMATION
  Report Type: Spontaneous
  Country: US (occurrence: None)
  Receive Date: 20240403
  Receipt Date: 20240403
  Transmission Date: 20240716
  Serious: No
  Sender: FDA-Public Use
  Company Number: None

PATIENT
  Age: 45 Year
  Sex: Male

DRUGS (3)
  1. SUBLOCADE [Suspect]
     Active Substance: BUPRENORPHINE
     Indication: Substance use disorder
  2. Sublocade 300mg/1.5mL [Concomitant]
  3. Sublocade 100mg/0.5mL [Concomitant]

REACTIONS (4)
  - Illness [None]
  - Erythema [None]
  - Vomiting [None]
  - Injection site swelling [None]

NARRATIVE: CASE EVENT DATE: 20240328
